FAERS Safety Report 9723646 (Version 1)
Quarter: 2013Q4

REPORT INFORMATION
  Report Type: Report from Study
  Country: GB (occurrence: GB)
  Receive Date: 20131202
  Receipt Date: 20131202
  Transmission Date: 20140711
  Serious: Yes (Disabling)
  Sender: FDA-Public Use
  Company Number: GB-GLAXOSMITHKLINE-B0892522A

PATIENT
  Age: 78 Year
  Sex: Male

DRUGS (4)
  1. SALMETEROL + FLUTICASONE [Suspect]
     Indication: CHRONIC OBSTRUCTIVE PULMONARY DISEASE
     Route: 055
     Dates: start: 20120727
  2. TIOTROPIUM [Suspect]
     Indication: CHRONIC OBSTRUCTIVE PULMONARY DISEASE
     Route: 055
     Dates: start: 20120727
  3. SERETIDE [Suspect]
     Indication: CHRONIC OBSTRUCTIVE PULMONARY DISEASE
     Route: 055
     Dates: start: 20080918, end: 20120726
  4. SPIRIVA [Concomitant]
     Indication: CHRONIC OBSTRUCTIVE PULMONARY DISEASE
     Route: 055
     Dates: start: 20080222, end: 20120726

REACTIONS (3)
  - Oesophageal ulcer [Recovered/Resolved]
  - Oesophageal candidiasis [Not Recovered/Not Resolved]
  - Gastritis [Recovered/Resolved]
